FAERS Safety Report 19748833 (Version 1)
Quarter: 2021Q3

REPORT INFORMATION
  Report Type: Spontaneous
  Country: GB (occurrence: GB)
  Receive Date: 20210826
  Receipt Date: 20210826
  Transmission Date: 20211014
  Serious: Yes (Other)
  Sender: FDA-Public Use
  Company Number: GB-AUROBINDO-AUR-APL-2021-036261

PATIENT

DRUGS (22)
  1. TAMOXIFEN [Suspect]
     Active Substance: TAMOXIFEN
     Indication: BREAST CANCER METASTATIC
     Dosage: 20 MILLIGRAM, ONCE A DAY
     Route: 048
     Dates: start: 20161010, end: 20190708
  2. LETROZOLE. [Suspect]
     Active Substance: LETROZOLE
     Indication: BREAST CANCER METASTATIC
     Dosage: 2.5 MICROGRAM, ONCE A DAY
     Route: 048
     Dates: start: 20190709
  3. DEXAMETHASONE. [Concomitant]
     Active Substance: DEXAMETHASONE
     Dosage: 0.5 MILLIGRAM, ONCE A DAY, 0.5 MG, BID (PHARMACEUTICAL DOSE FORM: 245) (CUMULATIVE DOSE TO FIRST REA
     Route: 048
     Dates: start: 20191224, end: 202002
  4. DOCUSATE [Concomitant]
     Active Substance: DOCUSATE
     Indication: CONSTIPATION
     Dosage: 100 MG (PHARMACEUTICAL DOSE FORM: 245)
     Route: 048
     Dates: start: 20210226
  5. LAXIDO [Concomitant]
     Active Substance: POLYETHYLENE GLYCOL 3350\POTASSIUM CHLORIDE\SODIUM BICARBONATE\SODIUM CHLORIDE
     Indication: PRODUCT USED FOR UNKNOWN INDICATION
     Dosage: UNK, ONCE A DAY
     Route: 048
     Dates: start: 20160627
  6. OMEPRAZOLE. [Concomitant]
     Active Substance: OMEPRAZOLE
     Indication: METASTASES TO CENTRAL NERVOUS SYSTEM
     Dosage: 40 MILLIGRAM, ONCE A DAY, 40 MG, QD (PHARMACEUTICAL DOSE FORM: 245)
     Route: 048
     Dates: start: 201909
  7. DEXAMETHASONE. [Concomitant]
     Active Substance: DEXAMETHASONE
     Indication: METASTASES TO CENTRAL NERVOUS SYSTEM
     Dosage: 2 MILLIGRAM, ONCE A DAY, 2 MG, QD (PHARMACEUTICAL DOSE FORM: 245; CUMULATIVE DOSE 812.0833 MG)
     Route: 048
     Dates: start: 20191011, end: 20191125
  8. DEXAMETHASONE. [Concomitant]
     Active Substance: DEXAMETHASONE
     Dosage: 4 MILLIGRAM, ONCE A DAY, 4 MG, QD (PHARMACEUTICAL DOSE FORM: 245) (CUMULATIVE DOSE TO FIRST REACTION
     Route: 048
     Dates: start: 20200611
  9. DEXAMETHASONE. [Concomitant]
     Active Substance: DEXAMETHASONE
     Dosage: 4 MILLIGRAM, ONCE A DAY, 4 MG, QD (PHARMACEUTICAL DOSE FORM: 245) (CUMULATIVE DOSE TO FIRST REACTION
     Route: 048
     Dates: start: 20210216
  10. BUSCOPAN [Concomitant]
     Active Substance: BUTYLSCOPOLAMINE BROMIDE
     Indication: PRODUCT USED FOR UNKNOWN INDICATION
     Dosage: 80 MILLIGRAM, ONCE A DAY
     Route: 048
     Dates: start: 20160625
  11. DEXAMETHASONE. [Concomitant]
     Active Substance: DEXAMETHASONE
     Dosage: 1.5 MILLIGRAM, ONCE A DAY, 1.5 MG, QD (PHARMACEUTICAL DOSE FORM: 245) (CUMULATIVE DOSE TO FIRST REAC
     Route: 048
     Dates: start: 20191126, end: 20191203
  12. PARACETAMOL [Concomitant]
     Active Substance: ACETAMINOPHEN
     Indication: MUSCULOSKELETAL PAIN
     Dosage: 1 GRAM, AS NECESSARY, 1 G, AS NECESSARY (PHARMACEUTICAL DOSE FORM: 245)
     Route: 048
     Dates: start: 20160612
  13. DOCETAXEL. [Suspect]
     Active Substance: DOCETAXEL
     Indication: BREAST CANCER METASTATIC
     Dosage: 120 MG. EVERY 3 WEEKS
     Route: 042
     Dates: start: 20160314, end: 20160810
  14. PERTUZUMAB. [Suspect]
     Active Substance: PERTUZUMAB
     Indication: BREAST CANCER METASTATIC
     Dosage: 840 MG, EVERY 3 WEEKS, INITIAL LOADING DOSE (PHARMACEUTICAL DOSE FORM: 230;CUMULATIVE DOSE 66801.66
     Route: 042
     Dates: start: 20160425, end: 20160425
  15. PERTUZUMAB. [Suspect]
     Active Substance: PERTUZUMAB
     Dosage: 420 MG, EVERY 3 WEEKS, MAINTENANCE DOSE (PHARMACEUTICAL DOSE FORM: 230; CUMULATIVE DOSE 32980.832 MG
     Route: 042
     Dates: start: 20160516
  16. TRASTUZUMAB. [Suspect]
     Active Substance: TRASTUZUMAB
     Indication: BREAST CANCER METASTATIC
     Dosage: 600 MG, EVERY 3 WEEKS (DOSE FORM: 231)
     Route: 058
     Dates: start: 20160425
  17. DEXAMETHASONE. [Concomitant]
     Active Substance: DEXAMETHASONE
     Indication: HEADACHE
     Dosage: 8 MILLIGRAM, ONCE A DAY, 8 MG, QD (PHARMACEUTICAL DOSE FORM: 245)
     Route: 048
     Dates: start: 201909, end: 20191010
  18. ORAMORPH [Concomitant]
     Active Substance: MORPHINE SULFATE
     Indication: METASTASES TO CENTRAL NERVOUS SYSTEM
     Dosage: UNK, AS NECESSARY
     Route: 048
     Dates: start: 20210311
  19. DEXAMETHASONE. [Concomitant]
     Active Substance: DEXAMETHASONE
     Dosage: 1 MILLIGRAM, ONCE A DAY, 1 MG, BID (PHARMACEUTICAL DOSE FORM: 245) (CUMULATIVE DOSE TO FIRST REACTIO
     Route: 048
     Dates: start: 20191204, end: 20191223
  20. IBUPROFEN. [Concomitant]
     Active Substance: IBUPROFEN
     Indication: MUSCULOSKELETAL PAIN
     Dosage: 200 MILLIGRAM, AS NECESSARY, 200 MG, AS NECESSARY (PHARMACEUTICAL DOSE FORM: 245)
     Route: 048
     Dates: start: 20160612
  21. AMITRIPTYLINE [Concomitant]
     Active Substance: AMITRIPTYLINE
     Indication: METASTASES TO CENTRAL NERVOUS SYSTEM
     Dosage: 10 MILLIGRAM, ONCE A DAY
     Route: 048
     Dates: start: 20210407
  22. CODEINE [Concomitant]
     Active Substance: CODEINE
     Indication: PHANTOM LIMB SYNDROME
     Dosage: 60 MILLIGRAM, ONCE A DAY
     Route: 048
     Dates: start: 20160919

REACTIONS (8)
  - Vision blurred [Not Recovered/Not Resolved]
  - Incorrect route of product administration [Unknown]
  - Urinary tract infection [Recovered/Resolved]
  - Constipation [Unknown]
  - Cellulitis [Unknown]
  - Acarodermatitis [Recovered/Resolved]
  - Skin infection [Unknown]
  - Headache [Not Recovered/Not Resolved]

NARRATIVE: CASE EVENT DATE: 20201120
